FAERS Safety Report 8138337-5 (Version None)
Quarter: 2012Q1

REPORT INFORMATION
  Report Type: 
  Country: None (occurrence: None)
  Receive Date: 20120215
  Receipt Date: 20120209
  Transmission Date: 20120608
  Serious: No
  Sender: FDA-Public Use
  Company Number: US-PFIZER INC-2012036884

PATIENT
  Sex: Female

DRUGS (2)
  1. LYRICA [Suspect]
     Dosage: 75 MG, 3X/DAY
  2. CYMBALTA [Suspect]
     Dosage: UNK

REACTIONS (7)
  - SCOLIOSIS [None]
  - ARTHRITIS [None]
  - FIBROMYALGIA [None]
  - BURSITIS [None]
  - TARSAL TUNNEL SYNDROME [None]
  - TENDONITIS [None]
  - DEPRESSION [None]
